FAERS Safety Report 21640778 (Version 1)
Quarter: 2022Q4

REPORT INFORMATION
  Report Type: Report from Study
  Country: BE (occurrence: BE)
  Receive Date: 20221125
  Receipt Date: 20221125
  Transmission Date: 20230113
  Serious: Yes (Hospitalization)
  Sender: FDA-Public Use
  Company Number: BE-ABBVIE-22K-013-4517681-00

PATIENT
  Age: 78 Year
  Sex: Male

DRUGS (13)
  1. CARBIDOPA\LEVODOPA [Suspect]
     Active Substance: CARBIDOPA\LEVODOPA
     Indication: Parkinson^s disease
     Dosage: MD: 4.0 ML, CD: 2.1 ML/H, ED: 1.0 ML DURING 16 HOURS
     Route: 050
     Dates: start: 20211119
  2. CARBIDOPA\LEVODOPA [Suspect]
     Active Substance: CARBIDOPA\LEVODOPA
     Route: 050
     Dates: start: 20220809, end: 202208
  3. CARBIDOPA\LEVODOPA [Suspect]
     Active Substance: CARBIDOPA\LEVODOPA
     Dosage: MD: 4.0 ML, CD: 2.6 ML/H, ED: 1.0 ML DURING 16 HOURS
     Route: 050
     Dates: start: 20220818, end: 20220819
  4. CARBIDOPA\LEVODOPA [Suspect]
     Active Substance: CARBIDOPA\LEVODOPA
     Dosage: MD: 4.0 ML, CD: 2.4 ML/H, ED: 1.0 ML DURING 16 HOURS
     Route: 050
     Dates: start: 20220819, end: 20220831
  5. CARBIDOPA\LEVODOPA [Suspect]
     Active Substance: CARBIDOPA\LEVODOPA
     Dosage: MD: 4.0 ML, CD: 2.1 ML/H, ED: 1.0 ML DURING 16 HOURS
     Route: 050
     Dates: start: 20220831, end: 20220906
  6. CARBIDOPA\LEVODOPA [Suspect]
     Active Substance: CARBIDOPA\LEVODOPA
     Dosage: MD: 4.0 ML, CD: 2.2 ML/H, ED: 1.5 ML DURING 16 HOURS
     Route: 050
     Dates: start: 20220906, end: 20221021
  7. CARBIDOPA\LEVODOPA [Suspect]
     Active Substance: CARBIDOPA\LEVODOPA
     Dosage: MD: 4.5 ML, CD: 2.5 ML/H, ED: 1.5 ML DURING 16 HOURS
     Route: 050
     Dates: start: 20221021, end: 20221118
  8. CARBIDOPA\LEVODOPA [Suspect]
     Active Substance: CARBIDOPA\LEVODOPA
     Route: 050
     Dates: start: 20220822, end: 202208
  9. CARBIDOPA\LEVODOPA [Suspect]
     Active Substance: CARBIDOPA\LEVODOPA
     Dosage: MD: 4.5 ML, CD: 2.5 ML/H, ED: 1.7 ML DURING 16 HOURS
     Route: 050
     Dates: start: 20221118
  10. BENSERAZIDE\LEVODOPA [Concomitant]
     Active Substance: BENSERAZIDE\LEVODOPA
     Indication: Parkinson^s disease
     Dosage: AT WAKING UP, AT 12.00,15.00,18.00,21.00?FORM STRENGTH: 250 UNIT UNKNOWN
     Route: 065
  11. PRAMIPEXOLE [Concomitant]
     Active Substance: PRAMIPEXOLE
     Indication: Parkinson^s disease
     Route: 048
  12. PRAMIPEXOLE [Concomitant]
     Active Substance: PRAMIPEXOLE
     Indication: Parkinson^s disease
     Dates: start: 2022
  13. COMTAN [Concomitant]
     Active Substance: ENTACAPONE
     Indication: Parkinson^s disease
     Dosage: 4X DAILY WITH EACH DOSE OF PROLOPA

REACTIONS (14)
  - Freezing phenomenon [Recovering/Resolving]
  - Balance disorder [Unknown]
  - Feeding tube user [Not Recovered/Not Resolved]
  - Loss of personal independence in daily activities [Unknown]
  - Musculoskeletal stiffness [Unknown]
  - Gait disturbance [Unknown]
  - On and off phenomenon [Unknown]
  - Freezing phenomenon [Not Recovered/Not Resolved]
  - Dyskinesia [Recovering/Resolving]
  - Therapeutic product effect incomplete [Unknown]
  - Device placement issue [Recovered/Resolved]
  - Muscle rigidity [Unknown]
  - Gait disturbance [Recovering/Resolving]
  - Musculoskeletal disorder [Not Recovered/Not Resolved]

NARRATIVE: CASE EVENT DATE: 20221001
